FAERS Safety Report 18991762 (Version 1)
Quarter: 2021Q1

REPORT INFORMATION
  Report Type: Spontaneous
  Country: FR (occurrence: FR)
  Receive Date: 20210310
  Receipt Date: 20210310
  Transmission Date: 20210420
  Serious: Yes (Hospitalization)
  Sender: FDA-Public Use
  Company Number: NVSC2021FR051511

PATIENT
  Age: 67 Year
  Sex: Male
  Weight: 83 kg

DRUGS (3)
  1. TOBREX [Suspect]
     Active Substance: TOBRAMYCIN
     Indication: ULCERATIVE KERATITIS
     Dosage: UNK
     Route: 047
     Dates: start: 20210120, end: 20210126
  2. VITAMIN A [Suspect]
     Active Substance: VITAMIN A
     Indication: ULCERATIVE KERATITIS
     Dosage: (POUR 100 G, POMMADE OPHTALMIQUE)
     Route: 047
     Dates: start: 20210120, end: 20210126
  3. TRANXENE [Suspect]
     Active Substance: CLORAZEPATE DIPOTASSIUM
     Indication: MIXED ANXIETY AND DEPRESSIVE DISORDER
     Dosage: UNK
     Route: 048
     Dates: start: 20210115, end: 20210124

REACTIONS (2)
  - Blood creatinine increased [Recovered/Resolved]
  - Rash [Recovering/Resolving]

NARRATIVE: CASE EVENT DATE: 20210122
